FAERS Safety Report 10254909 (Version 1)
Quarter: 2014Q2

REPORT INFORMATION
  Report Type: Spontaneous
  Country: US (occurrence: None)
  Receive Date: 20140620
  Receipt Date: 20140620
  Transmission Date: 20141212
  Serious: Yes (Other)
  Sender: FDA-Public Use
  Company Number: None

PATIENT
  Age: 09 Year
  Sex: Male
  Weight: 33.11 kg

DRUGS (1)
  1. ALBUTEROL [Suspect]
     Indication: DYSPNOEA
     Route: 055

REACTIONS (3)
  - Wheezing [None]
  - Bronchospasm [None]
  - Hypersensitivity [None]
